FAERS Safety Report 5585391-0 (Version None)
Quarter: 2008Q1

REPORT INFORMATION
  Report Type: 
  Country: None (occurrence: None)
  Receive Date: 20080109
  Receipt Date: 20071231
  Transmission Date: 20080703
  Serious: Yes (Hospitalization)
  Sender: FDA-Public Use
  Company Number: US-GILEAD-2008-0014827

PATIENT
  Sex: Female
  Weight: 113.05 kg

DRUGS (7)
  1. LETAIRIS [Suspect]
     Indication: PULMONARY HYPERTENSION
     Route: 048
     Dates: start: 20071112
  2. BUMEX [Concomitant]
     Route: 048
  3. ALDACTONE [Concomitant]
     Route: 048
  4. DILAUDID [Concomitant]
     Route: 048
  5. EXJADE [Concomitant]
     Route: 048
  6. LANOXIN [Concomitant]
     Route: 048
  7. MS CONTIN [Concomitant]
     Route: 048

REACTIONS (1)
  - PAIN IN EXTREMITY [None]
